FAERS Safety Report 8778129 (Version 3)
Quarter: 2012Q4

REPORT INFORMATION
  Report Type: 
  Country: AR (occurrence: AR)
  Receive Date: 20120912
  Receipt Date: 20121205
  Transmission Date: 20130627
  Serious: Yes (Hospitalization, Other)
  Sender: FDA-Public Use
  Company Number: AR-ABBOTT-12P-007-0978157-00

PATIENT
  Sex: Male

DRUGS (1)
  1. HUMIRA [Suspect]
     Indication: RHEUMATOID ARTHRITIS
     Dates: start: 201108

REACTIONS (4)
  - Pneumothorax [Unknown]
  - Pneumonia [Unknown]
  - Lung disorder [Unknown]
  - Dyspnoea [Unknown]
